FAERS Safety Report 10541467 (Version 2)
Quarter: 2015Q1

REPORT INFORMATION
  Report Type: Spontaneous
  Country: KR (occurrence: KR)
  Receive Date: 20141024
  Receipt Date: 20150102
  Transmission Date: 20150720
  Serious: Yes (Death, Hospitalization)
  Sender: FDA-Public Use
  Company Number: KR-OTSUKA-US-2014-13243

PATIENT

DRUGS (4)
  1. DACOGEN [Suspect]
     Active Substance: DECITABINE
     Dosage: 14.2 MG/M2, UNKNOWN
     Route: 042
     Dates: start: 20140512, end: 20140516
  2. DACOGEN [Suspect]
     Active Substance: DECITABINE
     Indication: ACUTE MYELOID LEUKAEMIA
     Dosage: 14.9 MG/M2, UNKNOWN
     Route: 042
     Dates: start: 20140103, end: 20140107
  3. DACOGEN [Suspect]
     Active Substance: DECITABINE
     Dosage: 14.2 MG/M2, UNKNOWN
     Route: 042
     Dates: start: 20140204, end: 20140208
  4. DACOGEN [Suspect]
     Active Substance: DECITABINE
     Dosage: 14.2 MG/M2, UNKNOWN
     Route: 042
     Dates: start: 20140414, end: 20140418

REACTIONS (3)
  - Abdominal pain [Recovered/Resolved]
  - Pyrexia [Fatal]
  - Myalgia [Recovered/Resolved]

NARRATIVE: CASE EVENT DATE: 20140627
